FAERS Safety Report 8389671-5 (Version None)
Quarter: 2012Q2

REPORT INFORMATION
  Report Type: 
  Country: None (occurrence: None)
  Receive Date: 20120528
  Receipt Date: 20120516
  Transmission Date: 20120825
  Serious: Yes (Hospitalization)
  Sender: FDA-Public Use
  Company Number: BE-BRISTOL-MYERS SQUIBB COMPANY-16600959

PATIENT
  Sex: Male

DRUGS (1)
  1. IPILIMUMAB [Suspect]
     Dosage: NO OF INF: 4

REACTIONS (3)
  - DIARRHOEA [None]
  - EPILEPSY [None]
  - DEHYDRATION [None]
